FAERS Safety Report 9101734 (Version 1)
Quarter: 2013Q1

REPORT INFORMATION
  Report Type: Spontaneous
  Country: US (occurrence: US)
  Receive Date: 20130218
  Receipt Date: 20130218
  Transmission Date: 20140127
  Serious: Yes (Other)
  Sender: FDA-Public Use
  Company Number: US-COVIDIEN/TYCO HEALTHCARE/MALLINCKRODT-T201300782

PATIENT
  Age: 55 Year
  Sex: Male
  Weight: 63.49 kg

DRUGS (6)
  1. FENTANYL TRANSDERMAL SYSTEM [Suspect]
     Indication: BACK PAIN
     Dosage: 100 UG/HR, 2-FTS Q 72 HOURS
     Route: 062
     Dates: start: 20130107
  2. CITALOPRAM [Concomitant]
     Indication: ANXIETY
     Dosage: 20 MG, QD
     Route: 048
     Dates: start: 1993, end: 20130203
  3. XANAX [Concomitant]
     Indication: ANXIETY
  4. OXYCODONE [Concomitant]
     Indication: BREAKTHROUGH PAIN
     Dosage: 15 MG, BID
     Route: 048
  5. ALBUTEROL                          /00139501/ [Concomitant]
     Indication: DYSPNOEA
     Dosage: UNK
     Route: 055
  6. OMEPRAZOL                          /00661201/ [Concomitant]
     Indication: GASTROOESOPHAGEAL REFLUX DISEASE
     Dosage: UNK

REACTIONS (3)
  - Panic attack [Recovered/Resolved]
  - Hyperhidrosis [Recovered/Resolved]
  - Influenza [Recovered/Resolved]
